FAERS Safety Report 25491156 (Version 1)
Quarter: 2025Q2

REPORT INFORMATION
  Report Type: Spontaneous
  Country: IN (occurrence: IN)
  Receive Date: 20250629
  Receipt Date: 20250629
  Transmission Date: 20250717
  Serious: Yes (Hospitalization, Other)
  Sender: OXFORD PHARMACEUTICALS, LLC
  Company Number: IN-Oxford Pharmaceuticals, LLC-2179572

PATIENT
  Age: 30 Year
  Sex: Female

DRUGS (1)
  1. AMLODIPINE BESYLATE [Suspect]
     Active Substance: AMLODIPINE BESYLATE
     Indication: Product used for unknown indication

REACTIONS (10)
  - Toxicity to various agents [Unknown]
  - Non-cardiogenic pulmonary oedema [Unknown]
  - Bradycardia [Unknown]
  - Hypotension [Unknown]
  - Dyspnoea [Unknown]
  - Lethargy [Unknown]
  - Tachypnoea [Unknown]
  - Somnolence [Unknown]
  - Blood pressure decreased [Unknown]
  - Intentional overdose [Unknown]
